FAERS Safety Report 9121267 (Version 2)
Quarter: 2013Q2

REPORT INFORMATION
  Report Type: Spontaneous
  Country: TR (occurrence: TR)
  Receive Date: 20130225
  Receipt Date: 20130510
  Transmission Date: 20140414
  Serious: Yes (Hospitalization)
  Sender: FDA-Public Use
  Company Number: TR-PFIZER INC-2013063723

PATIENT
  Age: 43 Year
  Sex: Male

DRUGS (1)
  1. SILDENAFIL CITRATE [Suspect]
     Dosage: 100 MG TABLET, ONCE

REACTIONS (2)
  - Coronary artery thrombosis [Recovered/Resolved]
  - Acute myocardial infarction [Recovered/Resolved]
